FAERS Safety Report 23079665 (Version 4)
Quarter: 2023Q4

REPORT INFORMATION
  Report Type: Spontaneous
  Country: JP (occurrence: JP)
  Receive Date: 20231018
  Receipt Date: 20231227
  Transmission Date: 20240110
  Serious: Yes (Life-Threatening, Other)
  Sender: FDA-Public Use
  Company Number: JP-shionogi-202311984_EXJ_P_1

PATIENT
  Age: 49 Year
  Sex: Female
  Weight: 69 kg

DRUGS (11)
  1. CYCLOPHOSPHAMIDE [Suspect]
     Active Substance: CYCLOPHOSPHAMIDE
     Indication: Breast cancer female
     Dosage: 1090 MG, ONCE A DAY, INJECTION, AS PART OF DOSE-DENSE AC THERAPY
     Route: 041
     Dates: start: 20230809, end: 20230920
  2. DOXORUBICIN [Suspect]
     Active Substance: DOXORUBICIN
     Indication: Breast cancer female
     Dosage: 109.9 MG, ONCE A DAY, INJECTION, AS PART OF DOSE-DENSE AC THERAPY
     Route: 041
     Dates: start: 20230809, end: 20230920
  3. PEGFILGRASTIM [Suspect]
     Active Substance: PEGFILGRASTIM
     Indication: Neutrophil count decreased
     Dosage: 3.6 MG, ONCE A DAY, GENETICAL RECOMBINATION
     Route: 058
     Dates: start: 20230616, end: 20230922
  4. PEGFILGRASTIM [Suspect]
     Active Substance: PEGFILGRASTIM
     Indication: Prophylaxis
     Dosage: 3.6 MG/DAY, GENETICAL RECOMBINATION
     Route: 058
     Dates: start: 20230616, end: 20230922
  5. PEGFILGRASTIM [Suspect]
     Active Substance: PEGFILGRASTIM
     Indication: Neutrophil count decreased
  6. PALONOSETRON [Concomitant]
     Active Substance: PALONOSETRON
     Indication: Prophylaxis of nausea and vomiting
     Dosage: 0.75 MG, ONCE A DAY
     Route: 041
     Dates: start: 20230809, end: 20230920
  7. DEXAMETHASONE SODIUM PHOSPHATE [Concomitant]
     Active Substance: DEXAMETHASONE PHOSPHATE\DEXAMETHASONE SODIUM PHOSPHATE
     Indication: Prophylaxis of nausea and vomiting
     Dosage: 9.9 MG, ONCE A DAY
     Route: 041
     Dates: start: 20230614, end: 20230920
  8. FOSNETUPITANT CHLORIDE HYDROCHLORIDE [Concomitant]
     Active Substance: FOSNETUPITANT CHLORIDE HYDROCHLORIDE
     Indication: Prophylaxis of nausea and vomiting
     Dosage: 235 MG, ONCE A DAY
     Route: 041
     Dates: start: 20230809, end: 20230920
  9. PACLITAXEL [Concomitant]
     Active Substance: PACLITAXEL
     Indication: Breast cancer female
     Dosage: UNK, DOSE-DENSE
     Route: 065
  10. FAMOTIDINE [Concomitant]
     Active Substance: FAMOTIDINE
     Dosage: UNK
     Route: 065
  11. CHLORPHENIRAMINE MALEATE [Concomitant]
     Active Substance: CHLORPHENIRAMINE MALEATE
     Dosage: UNK
     Route: 065

REACTIONS (4)
  - Pulmonary toxicity [Recovering/Resolving]
  - Pneumocystis jirovecii pneumonia [Recovering/Resolving]
  - Dyspnoea exertional [Unknown]
  - Pyrexia [Unknown]

NARRATIVE: CASE EVENT DATE: 20231007
